FAERS Safety Report 23260720 (Version 1)
Quarter: 2023Q4

REPORT INFORMATION
  Report Type: Spontaneous
  Country: US (occurrence: None)
  Receive Date: 20231205
  Receipt Date: 20231205
  Transmission Date: 20240109
  Serious: Yes (Hospitalization)
  Sender: FDA-Public Use
  Company Number: US-drreddys-LIT/USA/23/0187598

PATIENT
  Age: 67 Year
  Sex: Male

DRUGS (1)
  1. ABIRATERONE [Suspect]
     Active Substance: ABIRATERONE
     Indication: Prostate cancer metastatic

REACTIONS (3)
  - Primary adrenal insufficiency [Recovered/Resolved]
  - Secondary adrenocortical insufficiency [Recovered/Resolved]
  - Oedema peripheral [Recovered/Resolved]
